FAERS Safety Report 7047909-0 (Version None)
Quarter: 2010Q4

REPORT INFORMATION
  Report Type: 
  Country: None (occurrence: None)
  Receive Date: 20101014
  Receipt Date: 20101014
  Transmission Date: 20110411
  Serious: Yes (Hospitalization)
  Sender: FDA-Public Use
  Company Number: None

PATIENT
  Sex: Male
  Weight: 42.1 kg

DRUGS (6)
  1. MERCAPTOPURINE [Suspect]
     Dosage: 2425
     Dates: end: 20100923
  2. METHOTREXATE [Suspect]
     Dosage: 60 MG
     Dates: end: 20100827
  3. PEG-L ASPARAGINASE (PEGASPARGASE, ONCOSPAR) [Suspect]
     Dosage: 3933 IU
     Dates: end: 20100924
  4. VINCRISTINE SULFATE [Suspect]
     Dosage: 8 MG
     Dates: end: 20101001
  5. CYCLOPHOSPHAMIDE [Suspect]
     Dosage: 2710 MG
     Dates: end: 20100910
  6. CYTARABINE [Suspect]
     Dosage: 1620 MG
     Dates: end: 20100920

REACTIONS (8)
  - ACTIVATED PARTIAL THROMBOPLASTIN TIME [None]
  - ACTIVATED PARTIAL THROMBOPLASTIN TIME ABNORMAL [None]
  - BLOOD BILIRUBIN ABNORMAL [None]
  - BLOOD GLUCOSE ABNORMAL [None]
  - CONVULSION [None]
  - INFUSION RELATED REACTION [None]
  - INTERNATIONAL NORMALISED RATIO ABNORMAL [None]
  - URTICARIA [None]
